FAERS Safety Report 24346704 (Version 1)
Quarter: 2024Q3

REPORT INFORMATION
  Report Type: Spontaneous
  Country: PT (occurrence: PT)
  Receive Date: 20240921
  Receipt Date: 20240921
  Transmission Date: 20241017
  Serious: Yes (Life-Threatening, Hospitalization)
  Sender: ROCHE
  Company Number: None

PATIENT
  Age: 60 Year
  Sex: Male

DRUGS (5)
  1. RITUXIMAB [Suspect]
     Active Substance: RITUXIMAB
     Indication: Rheumatoid arthritis
     Dosage: UNK
     Route: 042
     Dates: start: 202206
  2. RITUXIMAB [Suspect]
     Active Substance: RITUXIMAB
     Indication: Serositis
  3. METHOTREXATE [Suspect]
     Active Substance: METHOTREXATE
     Indication: Rheumatoid arthritis
     Dosage: UNK
     Route: 065
     Dates: start: 202206
  4. PREDNISOLONE [Suspect]
     Active Substance: PREDNISOLONE
     Indication: Rheumatoid arthritis
     Dosage: UNK
     Route: 065
     Dates: start: 202006
  5. HYDROXYCHLOROQUINE [Suspect]
     Active Substance: HYDROXYCHLOROQUINE
     Indication: Rheumatoid arthritis
     Dosage: UNK
     Route: 065
     Dates: start: 202206

REACTIONS (2)
  - Cerebral nocardiosis [Recovering/Resolving]
  - Off label use [Unknown]

NARRATIVE: CASE EVENT DATE: 20221001
